FAERS Safety Report 9765126 (Version 1)
Quarter: 2013Q4

REPORT INFORMATION
  Report Type: Spontaneous
  Country: US (occurrence: None)
  Receive Date: 20131213
  Receipt Date: 20131213
  Transmission Date: 20140711
  Serious: Yes (Other)
  Sender: FDA-Public Use
  Company Number: 2013SA032846

PATIENT
  Sex: Female

DRUGS (1)
  1. ICY HOT [Suspect]
     Indication: ARTHRALGIA
     Route: 061
     Dates: start: 20080127

REACTIONS (6)
  - Thermal burn [None]
  - Injury [None]
  - Arthralgia [None]
  - Scab [None]
  - Scar [None]
  - Skin exfoliation [None]
